FAERS Safety Report 8485165-7 (Version None)
Quarter: 2012Q3

REPORT INFORMATION
  Report Type: 
  Country: None (occurrence: None)
  Receive Date: 20120703
  Receipt Date: 20120627
  Transmission Date: 20120928
  Serious: Yes (Other)
  Sender: FDA-Public Use
  Company Number: US-PFIZER INC-2011300848

PATIENT
  Sex: Male

DRUGS (1)
  1. PROCARDIA XL [Suspect]
     Indication: HYPERTENSION
     Dosage: 60 MG, UNK
     Route: 048

REACTIONS (4)
  - DEMENTIA ALZHEIMER'S TYPE [None]
  - MALAISE [None]
  - JOINT SWELLING [None]
  - RASH PRURITIC [None]
